FAERS Safety Report 14459507 (Version 1)
Quarter: 2018Q1

REPORT INFORMATION
  Report Type: Spontaneous
  Country: US (occurrence: US)
  Receive Date: 20180129
  Receipt Date: 20180129
  Transmission Date: 20180509
  Serious: Yes (Hospitalization)
  Sender: FDA-Public Use
  Company Number: None

PATIENT
  Age: 26 Year
  Sex: Female

DRUGS (7)
  1. PULMOZYME [Suspect]
     Active Substance: DORNASE ALFA
     Indication: CYSTIC FIBROSIS LUNG
     Route: 055
     Dates: start: 20170308
  2. MEDROXYPR AC INJ [Concomitant]
  3. COLISTIMETH INJ [Concomitant]
  4. TAZICEF INJ [Concomitant]
  5. PULMOZYME [Concomitant]
     Active Substance: DORNASE ALFA
  6. TOBI [Concomitant]
     Active Substance: TOBRAMYCIN
  7. ORKAMBI [Concomitant]
     Active Substance: IVACAFTOR\LUMACAFTOR

REACTIONS (1)
  - Lung disorder [None]

NARRATIVE: CASE EVENT DATE: 20180124
